FAERS Safety Report 12831908 (Version 1)
Quarter: 2016Q4

REPORT INFORMATION
  Report Type: Report from Study
  Country: US (occurrence: US)
  Receive Date: 20161010
  Receipt Date: 20161010
  Transmission Date: 20170207
  Serious: Yes (Hospitalization, Other)
  Sender: FDA-Public Use
  Company Number: US-ROCHE-1154767

PATIENT
  Age: 52 Year
  Sex: Male
  Weight: 77 kg

DRUGS (17)
  1. BEVACIZUMAB [Suspect]
     Active Substance: BEVACIZUMAB
     Indication: CARCINOID TUMOUR
     Dosage: TAC1, CYCLE= 28 DAYS, LAST DOSE PRIOR TO SAE: 12/SEP/2012
     Route: 042
     Dates: start: 20110926
  2. BEVACIZUMAB [Suspect]
     Active Substance: BEVACIZUMAB
     Dosage: COUSE ID: 6
     Route: 042
     Dates: start: 20120213
  3. BEVACIZUMAB [Suspect]
     Active Substance: BEVACIZUMAB
     Dosage: COUSE ID: 7-12
     Route: 042
     Dates: start: 20120312, end: 20120730
  4. BEVACIZUMAB [Suspect]
     Active Substance: BEVACIZUMAB
     Dosage: COUSE ID: 5
     Route: 042
     Dates: start: 20120116
  5. BEVACIZUMAB [Suspect]
     Active Substance: BEVACIZUMAB
     Dosage: COUSE ID: 13
     Route: 042
     Dates: start: 20120827
  6. TEMSIROLIMUS [Suspect]
     Active Substance: TEMSIROLIMUS
     Dosage: COURSE ID 24
     Route: 042
     Dates: start: 20130703
  7. TEMSIROLIMUS [Suspect]
     Active Substance: TEMSIROLIMUS
     Indication: CARCINOID TUMOUR
     Dosage: LAST DOSE PRIOR TO SAE: 12/SEP/2012, DELAYED FOR 2 DAYS
     Route: 042
     Dates: start: 20110926
  8. TEMSIROLIMUS [Suspect]
     Active Substance: TEMSIROLIMUS
     Dosage: COURSE ID: 1
     Route: 042
     Dates: start: 20110926
  9. TEMSIROLIMUS [Suspect]
     Active Substance: TEMSIROLIMUS
     Dosage: COURSE ID:20
     Route: 042
     Dates: start: 20130313
  10. BEVACIZUMAB [Suspect]
     Active Substance: BEVACIZUMAB
     Dosage: COUSE ID: 1- 2
     Route: 042
     Dates: start: 20110926, end: 20111024
  11. BEVACIZUMAB [Suspect]
     Active Substance: BEVACIZUMAB
     Dosage: COUSE ID: 3-4
     Route: 042
     Dates: start: 20111205, end: 20111219
  12. TEMSIROLIMUS [Suspect]
     Active Substance: TEMSIROLIMUS
     Dosage: COURSE ID: 13, 16, 17, 21, 22, 23, 25
     Route: 042
     Dates: start: 20120827
  13. TEMSIROLIMUS [Suspect]
     Active Substance: TEMSIROLIMUS
     Dosage: COURSE ID 15, 19 AND 27-31
     Route: 042
     Dates: start: 20120827
  14. TEMSIROLIMUS [Suspect]
     Active Substance: TEMSIROLIMUS
     Dosage: COURSE ID: 4
     Route: 042
     Dates: start: 20111219
  15. TEMSIROLIMUS [Suspect]
     Active Substance: TEMSIROLIMUS
     Dosage: COURSE ID: 6-12, 18
     Route: 042
     Dates: start: 20120116
  16. TEMSIROLIMUS [Suspect]
     Active Substance: TEMSIROLIMUS
     Dosage: COURSE ID: 2
     Route: 042
     Dates: start: 20111024
  17. TEMSIROLIMUS [Suspect]
     Active Substance: TEMSIROLIMUS
     Dosage: COURSE ID: 3, 19
     Route: 042
     Dates: start: 20111205

REACTIONS (10)
  - Upper gastrointestinal haemorrhage [Unknown]
  - Blood alkaline phosphatase increased [Unknown]
  - Alanine aminotransferase increased [Unknown]
  - Constipation [Unknown]
  - Anorectal infection [Recovered/Resolved]
  - Proctalgia [Recovered/Resolved]
  - Anal fistula [Recovered/Resolved]
  - Blood bilirubin increased [Unknown]
  - Headache [Unknown]
  - Lower gastrointestinal haemorrhage [Unknown]

NARRATIVE: CASE EVENT DATE: 20120917
